FAERS Safety Report 13983332 (Version 2)
Quarter: 2017Q3

REPORT INFORMATION
  Report Type: Report from Study
  Country: US (occurrence: US)
  Receive Date: 20170918
  Receipt Date: 20170925
  Transmission Date: 20171128
  Serious: Yes (Hospitalization)
  Sender: FDA-Public Use
  Company Number: US-EISAI MEDICAL RESEARCH-EC-2017-031157

PATIENT
  Age: 2 Year
  Sex: Female
  Weight: 12.6 kg

DRUGS (15)
  1. BACLOFEN. [Concomitant]
     Active Substance: BACLOFEN
  2. MIRALAX [Concomitant]
     Active Substance: POLYETHYLENE GLYCOL 3350
  3. ALBUTEROL. [Concomitant]
     Active Substance: ALBUTEROL
  4. ZYRTEC [Concomitant]
     Active Substance: CETIRIZINE HYDROCHLORIDE
  5. TOPAMAX [Concomitant]
     Active Substance: TOPIRAMATE
  6. PERAMPANEL [Suspect]
     Active Substance: PERAMPANEL
     Route: 050
     Dates: start: 20170816, end: 20170829
  7. PREVACID [Concomitant]
     Active Substance: LANSOPRAZOLE
  8. KEPPRA [Concomitant]
     Active Substance: LEVETIRACETAM
  9. ONFI [Concomitant]
     Active Substance: CLOBAZAM
  10. PROBIOTIC [Concomitant]
     Active Substance: PROBIOTICS NOS
  11. PERAMPANEL [Suspect]
     Active Substance: PERAMPANEL
     Indication: TONIC CONVULSION
     Route: 050
     Dates: start: 20170802, end: 20170815
  12. DIASTAT [Concomitant]
     Active Substance: DIAZEPAM
  13. PERAMPANEL [Suspect]
     Active Substance: PERAMPANEL
     Route: 050
     Dates: start: 20170830
  14. GLYCOPYRROLATE. [Concomitant]
     Active Substance: GLYCOPYRROLATE
  15. AMOXICILLIN. [Concomitant]
     Active Substance: AMOXICILLIN

REACTIONS (1)
  - Pneumonia [Recovered/Resolved]

NARRATIVE: CASE EVENT DATE: 20170910
